FAERS Safety Report 4707865-4 (Version None)
Quarter: 2005Q3

REPORT INFORMATION
  Report Type: 
  Country: None (occurrence: None)
  Receive Date: 20050705
  Receipt Date: 20050705
  Transmission Date: 20060218
  Serious: Yes (Life-Threatening, Hospitalization)
  Sender: FDA-Public Use
  Company Number: None

PATIENT
  Age: 49 Year
  Sex: Female
  Weight: 49.9 kg

DRUGS (3)
  1. DIVALPROEX SODIUM [Suspect]
     Indication: EPILEPSY
     Dosage: 250 MG  TID  PO
     Route: 048
     Dates: start: 20040801, end: 20050601
  2. ALENDRONATE [Concomitant]
  3. FLUDROCORTISONE ACETATE [Concomitant]

REACTIONS (1)
  - HEPATITIS [None]
